FAERS Safety Report 16061719 (Version 8)
Quarter: 2024Q4

REPORT INFORMATION
  Report Type: Spontaneous
  Country: US (occurrence: US)
  Receive Date: 20190312
  Receipt Date: 20241211
  Transmission Date: 20250115
  Serious: Yes (Other)
  Sender: PFIZER
  Company Number: US-PFIZER INC-2019102089

PATIENT
  Age: 68 Year
  Sex: Female

DRUGS (2)
  1. XELJANZ XR [Suspect]
     Active Substance: TOFACITINIB CITRATE
     Dosage: 11 MG, 1X/DAY
     Route: 048
     Dates: end: 2023
  2. XELJANZ XR [Suspect]
     Active Substance: TOFACITINIB CITRATE
     Dosage: 11 MG, 1X/DAY
     Route: 048
     Dates: start: 20230803

REACTIONS (31)
  - Upper limb fracture [Unknown]
  - Fall [Unknown]
  - Diverticulitis [Unknown]
  - Nephrolithiasis [Unknown]
  - Abdominal discomfort [Unknown]
  - Somnolence [Unknown]
  - Gait disturbance [Unknown]
  - Urinary tract infection [Not Recovered/Not Resolved]
  - Joint injury [Unknown]
  - Loss of personal independence in daily activities [Unknown]
  - Infection [Unknown]
  - Folliculitis genital [Unknown]
  - Condition aggravated [Unknown]
  - Musculoskeletal stiffness [Unknown]
  - Arthralgia [Unknown]
  - Joint swelling [Unknown]
  - Back pain [Unknown]
  - White blood cell count increased [Unknown]
  - C-reactive protein increased [Unknown]
  - Pelvic pain [Unknown]
  - Constipation [Unknown]
  - Pain [Recovered/Resolved]
  - Paraesthesia [Recovered/Resolved]
  - COVID-19 [Unknown]
  - Influenza [Unknown]
  - Neck pain [Unknown]
  - Joint impingement [Unknown]
  - Pain in extremity [Unknown]
  - Fatigue [Unknown]
  - Insomnia [Unknown]
  - Arthritis [Unknown]

NARRATIVE: CASE EVENT DATE: 20190301
